FAERS Safety Report 9637349 (Version 4)
Quarter: 2014Q3

REPORT INFORMATION
  Report Type: Spontaneous
  Country: PT (occurrence: PT)
  Receive Date: 20131022
  Receipt Date: 20140912
  Transmission Date: 20150326
  Serious: Yes (Other)
  Sender: FDA-Public Use
  Company Number: PT-GE HEALTHCARE MEDICAL DIAGNOSTICS-VISP-PR-1310S-0857

PATIENT
  Age: 66 Year
  Sex: Male

DRUGS (6)
  1. OMEPRAZOLE. [Concomitant]
     Active Substance: OMEPRAZOLE
  2. DUAGEN [Concomitant]
  3. VISIPAQUE [Suspect]
     Active Substance: IODIXANOL
     Indication: DIAGNOSTIC PROCEDURE
  4. LOSARTAN [Concomitant]
     Active Substance: LOSARTAN
  5. VISIPAQUE [Suspect]
     Active Substance: IODIXANOL
     Indication: NEUROENDOCRINE TUMOUR
     Route: 042
     Dates: start: 20131002, end: 20131002
  6. ALLOPURINOL. [Concomitant]
     Active Substance: ALLOPURINOL

REACTIONS (3)
  - Throat irritation [Recovered/Resolved]
  - Cough [Recovered/Resolved]
  - Throat tightness [Recovered/Resolved]

NARRATIVE: CASE EVENT DATE: 20131002
